FAERS Safety Report 10185923 (Version 1)
Quarter: 2014Q2

REPORT INFORMATION
  Report Type: Spontaneous
  Country: FR (occurrence: FR)
  Receive Date: 20140521
  Receipt Date: 20140521
  Transmission Date: 20141212
  Serious: Yes (Other)
  Sender: FDA-Public Use
  Company Number: FR-ASTRAZENECA-2014SE34429

PATIENT
  Age: 45 Year
  Sex: Female

DRUGS (10)
  1. INEXIUM [Suspect]
     Route: 048
  2. PROPRANOLOL [Suspect]
     Route: 048
  3. TRAMADOL BASE [Suspect]
     Route: 065
  4. DYSPORT [Suspect]
     Indication: MICTURITION DISORDER
     Route: 043
     Dates: start: 20130809
  5. THIOCOLCHICOSIDE [Concomitant]
  6. TETRAZEPAM [Concomitant]
  7. TOPALGIC [Concomitant]
  8. IXPRIM [Concomitant]
  9. HAVLANE [Concomitant]
  10. LEXOMIL [Concomitant]

REACTIONS (5)
  - Pancreatic insufficiency [Not Recovered/Not Resolved]
  - Faecal incontinence [Unknown]
  - Diarrhoea [Not Recovered/Not Resolved]
  - Gastritis erosive [Unknown]
  - Abdominal pain lower [Unknown]
